FAERS Safety Report 24108842 (Version 3)
Quarter: 2024Q4

REPORT INFORMATION
  Report Type: Spontaneous
  Country: JP (occurrence: JP)
  Receive Date: 20240718
  Receipt Date: 20241014
  Transmission Date: 20250114
  Serious: Yes (Life-Threatening, Hospitalization, Other)
  Sender: BRISTOL-MYERS SQUIBB COMPANY
  Company Number: JP-ONO-2024JP014729

PATIENT
  Age: 74 Year
  Sex: Male

DRUGS (1)
  1. OPDIVO [Suspect]
     Active Substance: NIVOLUMAB
     Indication: Non-small cell lung cancer
     Route: 041
     Dates: start: 20230929, end: 20231110

REACTIONS (3)
  - Stress cardiomyopathy [Recovering/Resolving]
  - Adrenal insufficiency [Recovering/Resolving]
  - Hypophysitis [Recovered/Resolved]

NARRATIVE: CASE EVENT DATE: 20240712
